FAERS Safety Report 5138990-4 (Version None)
Quarter: 2006Q4

REPORT INFORMATION
  Report Type: 
  Country: None (occurrence: None)
  Receive Date: 20061030
  Receipt Date: 20060524
  Transmission Date: 20070319
  Serious: No
  Sender: FDA-Public Use
  Company Number: US-GLAXOSMITHKLINE-A0607488A

PATIENT
  Age: 66 Year
  Sex: Female

DRUGS (1)
  1. ADVAIR HFA [Suspect]
     Indication: EMPHYSEMA
     Route: 055

REACTIONS (2)
  - IRRITABLE BOWEL SYNDROME [None]
  - ROSACEA [None]
